FAERS Safety Report 7964873-8 (Version None)
Quarter: 2011Q4

REPORT INFORMATION
  Report Type: 
  Country: None (occurrence: None)
  Receive Date: 20111208
  Receipt Date: 20111208
  Transmission Date: 20120403
  Serious: Yes (Hospitalization)
  Sender: FDA-Public Use
  Company Number: None

PATIENT
  Age: 43 Year
  Sex: Female
  Weight: 48.08 kg

DRUGS (1)
  1. ZITHROMAX [Suspect]
     Indication: SINUS DISORDER
     Dosage: 2 PILLS FIRST DAY 1 NEXT 4 DAY
     Route: 048
     Dates: start: 20111121, end: 20111125

REACTIONS (17)
  - THINKING ABNORMAL [None]
  - DECREASED APPETITE [None]
  - PALPITATIONS [None]
  - ASTHENIA [None]
  - DIARRHOEA [None]
  - HEADACHE [None]
  - MALABSORPTION [None]
  - PROTEIN TOTAL ABNORMAL [None]
  - IMPAIRED WORK ABILITY [None]
  - MALAISE [None]
  - FEELING ABNORMAL [None]
  - TINNITUS [None]
  - DEHYDRATION [None]
  - NAUSEA [None]
  - PANIC ATTACK [None]
  - APHAGIA [None]
  - WEIGHT DECREASED [None]
